FAERS Safety Report 12170666 (Version 1)
Quarter: 2016Q1

REPORT INFORMATION
  Report Type: Spontaneous
  Country: DE (occurrence: DE)
  Receive Date: 20160311
  Receipt Date: 20160311
  Transmission Date: 20160526
  Serious: Yes (Hospitalization)
  Sender: FDA-Public Use
  Company Number: DE-SUN PHARMACEUTICAL INDUSTRIES LTD-2016RR-112955

PATIENT

DRUGS (1)
  1. OXALIPLATIN. [Suspect]
     Active Substance: OXALIPLATIN
     Indication: COLON CANCER
     Dosage: 225 MG, DAILY
     Route: 042
     Dates: start: 20160217

REACTIONS (6)
  - Pruritus generalised [Unknown]
  - Heart rate decreased [Unknown]
  - Flushing [Unknown]
  - Malaise [Unknown]
  - Blood pressure decreased [Unknown]
  - Generalised erythema [Unknown]

NARRATIVE: CASE EVENT DATE: 20160217
